FAERS Safety Report 17546857 (Version 1)
Quarter: 2020Q1

REPORT INFORMATION
  Report Type: Spontaneous
  Country: FR (occurrence: FR)
  Receive Date: 20200316
  Receipt Date: 20200316
  Transmission Date: 20200409
  Serious: Yes (Death)
  Sender: FDA-Public Use
  Company Number: FR-UCBSA-2020010107

PATIENT
  Age: 3 Year
  Sex: Male
  Weight: 12 kg

DRUGS (7)
  1. LAMICTAL [Suspect]
     Active Substance: LAMOTRIGINE
     Indication: EPILEPTIC ENCEPHALOPATHY
     Dosage: 125 MILLIGRAM, DAILY
     Route: 048
     Dates: start: 201707
  2. FORLAX [Concomitant]
     Active Substance: POLYETHYLENE GLYCOL 4000
     Indication: PRODUCT USED FOR UNKNOWN INDICATION
     Dosage: UNK
  3. INEXIUM [ESOMEPRAZOLE MAGNESIUM] [Concomitant]
     Active Substance: ESOMEPRAZOLE MAGNESIUM
     Indication: PRODUCT USED FOR UNKNOWN INDICATION
     Dosage: UNK
  4. EPIDIOLEX [Suspect]
     Active Substance: CANNABIDIOL
     Indication: EPILEPTIC ENCEPHALOPATHY
     Dosage: 200 MILLIGRAM, DAILY
     Route: 048
     Dates: start: 20190628
  5. SCOPOLAMINE AMINOXIDE [Concomitant]
     Active Substance: SCOPOLAMINE N-OXIDE
     Indication: PRODUCT USED FOR UNKNOWN INDICATION
     Dosage: UNK
  6. KEPPRA [Suspect]
     Active Substance: LEVETIRACETAM
     Indication: EPILEPTIC ENCEPHALOPATHY
     Dosage: 500 MILLIGRAM, DAILY
     Route: 048
     Dates: start: 201704
  7. URBANYL [Suspect]
     Active Substance: CLOBAZAM
     Indication: EPILEPTIC ENCEPHALOPATHY
     Dosage: 5 MILLIGRAM  DAILY
     Route: 048
     Dates: start: 201704

REACTIONS (2)
  - Cardio-respiratory arrest [Fatal]
  - Epilepsy [Fatal]

NARRATIVE: CASE EVENT DATE: 20191228
